FAERS Safety Report 4559367-6 (Version None)
Quarter: 2005Q1

REPORT INFORMATION
  Report Type: 
  Country: None (occurrence: None)
  Receive Date: 20050124
  Receipt Date: 20050104
  Transmission Date: 20050727
  Serious: Yes (Other)
  Sender: FDA-Public Use
  Company Number: US-GLAXOSMITHKLINE-A0539189A

PATIENT
  Age: 12 Year
  Sex: Female

DRUGS (1)
  1. DEBROX DROPS [Suspect]
     Route: 001
     Dates: start: 20050102, end: 20050103

REACTIONS (6)
  - CERUMEN IMPACTION [None]
  - DEAFNESS [None]
  - DEAFNESS UNILATERAL [None]
  - DIZZINESS [None]
  - DRUG INEFFECTIVE [None]
  - HEADACHE [None]
